FAERS Safety Report 9163279 (Version 3)
Quarter: 2013Q4

REPORT INFORMATION
  Report Type: Spontaneous
  Country: FR (occurrence: FR)
  Receive Date: 20130314
  Receipt Date: 20131030
  Transmission Date: 20140711
  Serious: Yes (Hospitalization, Other)
  Sender: FDA-Public Use
  Company Number: FR-ROCHE-1201331

PATIENT
  Age: 71 Year
  Sex: Female

DRUGS (8)
  1. LUCENTIS [Suspect]
     Indication: AGE-RELATED MACULAR DEGENERATION
     Dosage: 10MG/ML
     Route: 050
  2. CARTEOL [Suspect]
     Indication: AGE-RELATED MACULAR DEGENERATION
     Route: 031
  3. ALDACTONE (FRANCE) [Suspect]
     Indication: HYPERTENSION
     Route: 048
  4. KIVEXA [Suspect]
     Indication: HIV INFECTION
     Route: 048
  5. SUSTIVA [Suspect]
     Indication: HIV INFECTION
     Route: 048
  6. TRAVATAN [Suspect]
     Indication: PRODUCT USED FOR UNKNOWN INDICATION
     Route: 047
  7. MONO-TILDIEM [Suspect]
     Indication: PRODUCT USED FOR UNKNOWN INDICATION
     Route: 048
  8. CRESTOR [Suspect]
     Indication: PRODUCT USED FOR UNKNOWN INDICATION
     Route: 048

REACTIONS (1)
  - Hypertrophic cardiomyopathy [Not Recovered/Not Resolved]
